FAERS Safety Report 5478833-2 (Version None)
Quarter: 2007Q4

REPORT INFORMATION
  Report Type: 
  Country: None (occurrence: None)
  Receive Date: 20071002
  Receipt Date: 20070918
  Transmission Date: 20080405
  Serious: Yes (Hospitalization)
  Sender: FDA-Public Use
  Company Number: 236365K07USA

PATIENT
  Age: 50 Year
  Sex: Female

DRUGS (2)
  1. REBIF [Suspect]
     Indication: MULTIPLE SCLEROSIS
     Dosage: 3 IN 1 WEEKS, SUBCUTANEOUS ; 44 MCG; 3 IN 1 WEEKS, SUBCUTANEOUS
     Route: 058
     Dates: start: 20070702, end: 20070701
  2. REBIF [Suspect]
     Indication: MULTIPLE SCLEROSIS
     Dosage: 3 IN 1 WEEKS, SUBCUTANEOUS ; 44 MCG; 3 IN 1 WEEKS, SUBCUTANEOUS
     Route: 058
     Dates: start: 20070729

REACTIONS (2)
  - DEHYDRATION [None]
  - TRIGEMINAL NEURALGIA [None]
